FAERS Safety Report 12333142 (Version 2)
Quarter: 2016Q2

REPORT INFORMATION
  Report Type: Report from Study
  Country: RU (occurrence: RU)
  Receive Date: 20160504
  Receipt Date: 20160518
  Transmission Date: 20160815
  Serious: Yes (Life-Threatening, Hospitalization, Other)
  Sender: FDA-Public Use
  Company Number: RU-BAYER-2016-084877

PATIENT
  Age: 48 Year
  Sex: Female
  Weight: 79.96 kg

DRUGS (1)
  1. YARINA [Suspect]
     Active Substance: DROSPIRENONE\ETHINYL ESTRADIOL
     Indication: CHEMICAL CONTRACEPTION
     Dosage: UNK
     Route: 048
     Dates: start: 201412, end: 201504

REACTIONS (7)
  - Chest pain [None]
  - Pulmonary infarction [None]
  - Pyrexia [None]
  - Pneumonia [None]
  - Hydrothorax [None]
  - Pulmonary embolism [None]
  - Dyspnoea [None]

NARRATIVE: CASE EVENT DATE: 201504
